FAERS Safety Report 6455491-1 (Version None)
Quarter: 2009Q4

REPORT INFORMATION
  Report Type: 
  Country: None (occurrence: None)
  Receive Date: 20091125
  Receipt Date: 20091009
  Transmission Date: 20100525
  Serious: No
  Sender: FDA-Public Use
  Company Number: US-ABBOTT-09P-163-0602379-00

PATIENT
  Sex: Female
  Weight: 93.07 kg

DRUGS (6)
  1. SIMCOR [Suspect]
     Indication: BLOOD CHOLESTEROL INCREASED
     Dosage: 500/20MG,1 IN 1 DAY
     Dates: start: 20090901
  2. POTASSIUM CHLORIDE [Concomitant]
     Indication: DRUG USE FOR UNKNOWN INDICATION
  3. SYNTHROID [Concomitant]
     Indication: HYPOTHYROIDISM
  4. LEXAPRO [Concomitant]
     Indication: DEPRESSION
  5. LANSOPRAZOLE [Concomitant]
     Indication: DRUG USE FOR UNKNOWN INDICATION
  6. HYDROCHLOROTHIAZIDE [Concomitant]
     Indication: HYPERTENSION

REACTIONS (5)
  - FLUSHING [None]
  - PARAESTHESIA [None]
  - POOR QUALITY SLEEP [None]
  - PRURITUS [None]
  - SKIN BURNING SENSATION [None]
